FAERS Safety Report 23752628 (Version 1)
Quarter: 2024Q2

REPORT INFORMATION
  Report Type: Spontaneous
  Country: US (occurrence: US)
  Receive Date: 20240417
  Receipt Date: 20240417
  Transmission Date: 20240716
  Serious: No
  Sender: FDA-Public Use
  Company Number: US-MYLANLABS-2024M1029914

PATIENT
  Age: 78 Year
  Sex: Male

DRUGS (1)
  1. LATANOPROST [Suspect]
     Active Substance: LATANOPROST
     Indication: Product used for unknown indication
     Dosage: 1 GTT DROPS, QD (DAILY)
     Route: 047

REACTIONS (2)
  - Eye irritation [Unknown]
  - Product formulation issue [Unknown]

NARRATIVE: CASE EVENT DATE: 20240111
